FAERS Safety Report 12784883 (Version 2)
Quarter: 2016Q4

REPORT INFORMATION
  Report Type: Spontaneous
  Country: US (occurrence: US)
  Receive Date: 20160927
  Receipt Date: 20161024
  Transmission Date: 20170207
  Serious: Yes (Other)
  Sender: FDA-Public Use
  Company Number: US-BAYER-2016-185627

PATIENT
  Age: 30 Year
  Sex: Female
  Weight: 73.16 kg

DRUGS (1)
  1. MIRENA [Suspect]
     Active Substance: LEVONORGESTREL
     Indication: CONTRACEPTION
     Dosage: 20 MCG/24HR, CONT
     Route: 015
     Dates: start: 201605

REACTIONS (6)
  - Device dislocation [Not Recovered/Not Resolved]
  - Post procedural haemorrhage [None]
  - Medical device discomfort [Not Recovered/Not Resolved]
  - Vulvovaginal discomfort [None]
  - Vaginal disorder [None]
  - Vaginal discharge [None]

NARRATIVE: CASE EVENT DATE: 2016
